FAERS Safety Report 11976662 (Version 1)
Quarter: 2016Q1

REPORT INFORMATION
  Report Type: Report from Study
  Country: JP (occurrence: JP)
  Receive Date: 20160129
  Receipt Date: 20160129
  Transmission Date: 20160526
  Serious: No
  Sender: FDA-Public Use
  Company Number: JP-UCBSA-2016002043

PATIENT
  Age: 37 Year
  Sex: Female
  Weight: 42 kg

DRUGS (6)
  1. MYSTAN [Concomitant]
     Active Substance: CLOBAZAM
     Indication: EPILEPSY
     Dosage: 30 MG, ONCE DAILY (QD)
     Route: 048
     Dates: start: 20140204
  2. TEGRETOL [Concomitant]
     Active Substance: CARBAMAZEPINE
     Indication: EPILEPSY
     Dosage: 800 MG, ONCE DAILY (QD)
     Route: 048
     Dates: start: 20121109
  3. KEPPRA [Concomitant]
     Active Substance: LEVETIRACETAM
     Indication: EPILEPSY
     Dosage: 2000 MG, ONCE DAILY (QD)
     Route: 048
     Dates: start: 20121109
  4. FOLIC ACID. [Concomitant]
     Active Substance: FOLIC ACID
     Indication: BONE MARROW FAILURE
     Dosage: UNK
     Route: 048
     Dates: start: 20151028
  5. LACOSAMIDE EP [Suspect]
     Active Substance: LACOSAMIDE
     Indication: EPILEPSY
     Dosage: 100 MG, 2X/DAY (BID)
     Route: 048
     Dates: start: 20131125
  6. MECOBALAMIN [Concomitant]
     Active Substance: METHYLCOBALAMIN
     Indication: BONE MARROW FAILURE
     Dosage: UNK
     Route: 048
     Dates: start: 20151028

REACTIONS (1)
  - Pneumonia [Recovered/Resolved]

NARRATIVE: CASE EVENT DATE: 20160109
